FAERS Safety Report 12513319 (Version 1)
Quarter: 2016Q2

REPORT INFORMATION
  Report Type: Spontaneous
  Country: US (occurrence: None)
  Receive Date: 20160629
  Receipt Date: 20160629
  Transmission Date: 20160815
  Serious: Yes (Hospitalization, Other)
  Sender: FDA-Public Use
  Company Number: None

PATIENT
  Age: 61 Year
  Sex: Female
  Weight: 53.98 kg

DRUGS (2)
  1. ELAVIL [Concomitant]
     Active Substance: AMITRIPTYLINE HYDROCHLORIDE
  2. MULTIHANCE [Suspect]
     Active Substance: GADOBENATE DIMEGLUMINE
     Indication: NUCLEAR MAGNETIC RESONANCE IMAGING
     Dosage: INTO A VEIN
     Route: 042

REACTIONS (10)
  - Headache [None]
  - Pain of skin [None]
  - Dry mouth [None]
  - Eye pain [None]
  - Confusional state [None]
  - Facial pain [None]
  - Ear pain [None]
  - Burning sensation [None]
  - Pain in jaw [None]
  - Pain [None]

NARRATIVE: CASE EVENT DATE: 20160616
